FAERS Safety Report 5601468-5 (Version None)
Quarter: 2008Q1

REPORT INFORMATION
  Report Type: 
  Country: None (occurrence: None)
  Receive Date: 20080118
  Receipt Date: 20080102
  Transmission Date: 20080703
  Serious: Yes (Other)
  Sender: FDA-Public Use
  Company Number: ACO_00423_2008

PATIENT
  Age: 18 Year
  Sex: Male
  Weight: 106.5953 kg

DRUGS (3)
  1. ZANAFLEX [Suspect]
     Indication: LUMBAR RADICULOPATHY
     Dosage: 4 MG QD AT BEDTIME
  2. LYRICA [Suspect]
     Indication: LUMBAR RADICULOPATHY
     Dosage: 75 MG BID
  3. LYRICA [Suspect]
     Indication: LUMBAR RADICULOPATHY
     Dosage: 150 MG BID

REACTIONS (1)
  - RASH [None]
